FAERS Safety Report 5715171-4 (Version None)
Quarter: 2008Q2

REPORT INFORMATION
  Report Type: 
  Country: None (occurrence: None)
  Receive Date: 20080423
  Receipt Date: 20080411
  Transmission Date: 20081010
  Serious: Yes (Hospitalization)
  Sender: FDA-Public Use
  Company Number: FR-ELI_LILLY_AND_COMPANY-FR200803003149

PATIENT
  Age: 52 Year
  Sex: Female
  Weight: 50 kg

DRUGS (3)
  1. CYMBALTA [Suspect]
     Indication: DEPRESSION
     Dosage: 60 MG, DAILY (1/D)
     Route: 048
     Dates: start: 20080210, end: 20080214
  2. SERTRALINE [Concomitant]
     Indication: DEPRESSION
     Dosage: 2 D/F, DAILY (1/D)
     Route: 048
     Dates: start: 20030101, end: 20080101
  3. NOCTAMIDE [Concomitant]
     Dosage: 1 D/F, EACH EVENING
     Route: 048
     Dates: start: 20070101

REACTIONS (1)
  - URTICARIA [None]
